FAERS Safety Report 5010730-9 (Version None)
Quarter: 2006Q2

REPORT INFORMATION
  Report Type: 
  Country: None (occurrence: None)
  Receive Date: 20060525
  Receipt Date: 20060209
  Transmission Date: 20061013
  Serious: Yes (Life-Threatening)
  Sender: FDA-Public Use
  Company Number: IT-AVENTIS-200611221GDDC

PATIENT
  Age: 49 Year
  Sex: Female

DRUGS (3)
  1. ARAVA [Suspect]
     Indication: MIXED CONNECTIVE TISSUE DISEASE
     Route: 048
     Dates: start: 20020808, end: 20050815
  2. CELECOXIB [Suspect]
     Indication: MIXED CONNECTIVE TISSUE DISEASE
     Route: 048
     Dates: start: 20040101, end: 20050815
  3. ENBREL [Suspect]
     Indication: MIXED CONNECTIVE TISSUE DISEASE
     Route: 058
     Dates: start: 20050515, end: 20050815

REACTIONS (4)
  - BUNDLE BRANCH BLOCK LEFT [None]
  - CARDIAC HYPERTROPHY [None]
  - SYNCOPE [None]
  - TACHYCARDIA [None]
